FAERS Safety Report 5708183-8 (Version None)
Quarter: 2008Q2

REPORT INFORMATION
  Report Type: 
  Country: None (occurrence: None)
  Receive Date: 20080417
  Receipt Date: 20080414
  Transmission Date: 20081010
  Serious: Yes (Other)
  Sender: FDA-Public Use
  Company Number: B0516952A

PATIENT
  Age: 71 Year
  Sex: Female
  Weight: 93 kg

DRUGS (8)
  1. ACETAMINOPHEN [Suspect]
     Indication: DRUG USE FOR UNKNOWN INDICATION
     Route: 065
     Dates: start: 20080201, end: 20080201
  2. METFORMIN HCL [Suspect]
     Indication: DRUG USE FOR UNKNOWN INDICATION
     Dosage: 1000MG PER DAY
     Route: 065
     Dates: start: 20070401, end: 20080225
  3. XENICAL [Suspect]
     Indication: DRUG USE FOR UNKNOWN INDICATION
     Dosage: 3U PER DAY
     Route: 048
     Dates: start: 20040901, end: 20080218
  4. RESYL PLUS [Concomitant]
     Indication: INFLUENZA
     Dosage: 30DROP TWICE PER DAY
     Route: 065
     Dates: start: 20080219, end: 20080226
  5. ATACAND HCT [Concomitant]
     Dosage: 12.5MG PER DAY
     Dates: start: 20020501
  6. ATENOLOL [Concomitant]
     Dosage: 100MG PER DAY
     Route: 065
     Dates: start: 20010401
  7. NIFEDICOR [Concomitant]
     Dosage: 40MG PER DAY
     Route: 065
     Dates: start: 20020501
  8. ASPIRIN [Concomitant]
     Dosage: 100MG PER DAY
     Route: 065
     Dates: start: 20030301

REACTIONS (16)
  - ALANINE AMINOTRANSFERASE INCREASED [None]
  - ANOREXIA [None]
  - ASPARTATE AMINOTRANSFERASE INCREASED [None]
  - BLOOD ALKALINE PHOSPHATASE INCREASED [None]
  - BLOOD BILIRUBIN INCREASED [None]
  - CHROMATURIA [None]
  - COUGH [None]
  - FATIGUE [None]
  - GALLBLADDER ENLARGEMENT [None]
  - GAMMA-GLUTAMYLTRANSFERASE INCREASED [None]
  - INFLUENZA [None]
  - LIVER FUNCTION TEST ABNORMAL [None]
  - OCULAR ICTERUS [None]
  - PAIN IN EXTREMITY [None]
  - PYREXIA [None]
  - YELLOW SKIN [None]
